FAERS Safety Report 24250942 (Version 1)
Quarter: 2024Q3

REPORT INFORMATION
  Report Type: Spontaneous
  Country: US (occurrence: None)
  Receive Date: 20240826
  Receipt Date: 20240826
  Transmission Date: 20241017
  Serious: Yes (Hospitalization)
  Sender: Public
  Company Number: None

PATIENT
  Sex: Female

DRUGS (11)
  1. MAVENCLAD [Suspect]
     Active Substance: CLADRIBINE
     Indication: Multiple sclerosis
     Dosage: FREQ: TAKE 2 TABLETS BY MOUTH EVERY DAY FOR 5 DAYS FOLLOW PACKAGE INFORMATION.?
     Route: 048
     Dates: start: 20240803
  2. ALBUTEROL AER HFA [Concomitant]
  3. BACLOFEN [Concomitant]
     Active Substance: BACLOFEN
  4. BENZONATATE [Concomitant]
  5. BUPROPION [Concomitant]
     Active Substance: BUPROPION
  6. DIAZEPAM [Concomitant]
  7. DIPHENHYDRAM [Concomitant]
  8. FLUCONAZOLE [Concomitant]
  9. HYDROCHLOROTHIAZIDE [Concomitant]
     Active Substance: HYDROCHLOROTHIAZIDE
  10. METHYLPHENIDATE [Concomitant]
     Active Substance: METHYLPHENIDATE
  11. METOPROLOL [Concomitant]

REACTIONS (1)
  - Palpitations [None]
